FAERS Safety Report 10577972 (Version 1)
Quarter: 2014Q4

REPORT INFORMATION
  Report Type: Spontaneous
  Country: US (occurrence: US)
  Receive Date: 20141112
  Receipt Date: 20141112
  Transmission Date: 20150529
  Serious: No
  Sender: FDA-Public Use
  Company Number: US-009507513-1410USA010081

PATIENT
  Sex: Male

DRUGS (4)
  1. REMERON [Suspect]
     Active Substance: MIRTAZAPINE
     Indication: SLEEP DISORDER
     Dosage: 15 MG, ONCE
     Route: 048
  2. PROTONIX [Concomitant]
     Active Substance: PANTOPRAZOLE SODIUM
     Dosage: 20 MG, QD
  3. REMERON [Suspect]
     Active Substance: MIRTAZAPINE
     Dosage: A QUARTER OR LESS OF A 15 MG TABLET BEFORE BED AS NEED, MOST OFTEN TOOK 0.125 TABLET
     Route: 048
     Dates: start: 2009
  4. MIRTAZAPINE. [Suspect]
     Active Substance: MIRTAZAPINE
     Indication: SLEEP DISORDER

REACTIONS (6)
  - Energy increased [Recovered/Resolved]
  - Off label use [Unknown]
  - Product quality issue [Unknown]
  - Wrong technique in drug usage process [Unknown]
  - Somnolence [Recovered/Resolved]
  - Expired product administered [Unknown]
